FAERS Safety Report 18340633 (Version 1)
Quarter: 2020Q4

REPORT INFORMATION
  Report Type: Spontaneous
  Country: CA (occurrence: CA)
  Receive Date: 20201002
  Receipt Date: 20201002
  Transmission Date: 20210113
  Serious: Yes (Death, Hospitalization, Other)
  Sender: FDA-Public Use
  Company Number: CA-PURDUE-USA-2020-0168741

PATIENT
  Age: 38 Year
  Sex: Male

DRUGS (2)
  1. HYDROMORPHONE HCL (SIMILAR TO 19-892) [Suspect]
     Active Substance: HYDROMORPHONE HYDROCHLORIDE
     Indication: PAIN
     Dosage: UNK
     Route: 042
  2. HYDROMORPHONE HCL (SIMILAR TO 19-892) [Suspect]
     Active Substance: HYDROMORPHONE HYDROCHLORIDE
     Indication: DRUG ABUSE

REACTIONS (11)
  - Sepsis [Fatal]
  - Cardiovascular insufficiency [Fatal]
  - Multiple organ dysfunction syndrome [Fatal]
  - Cardiac arrest [Fatal]
  - Respiratory distress [Fatal]
  - Toxicity to various agents [Fatal]
  - Overdose [Fatal]
  - Thrombosis [Fatal]
  - Drug abuse [Fatal]
  - Shock [Fatal]
  - Life support [Fatal]
